FAERS Safety Report 17452505 (Version 1)
Quarter: 2020Q1

REPORT INFORMATION
  Report Type: Spontaneous
  Country: US (occurrence: US)
  Receive Date: 20200224
  Receipt Date: 20200224
  Transmission Date: 20200409
  Serious: Yes (Other)
  Sender: FDA-Public Use
  Company Number: US-SPECGX-T202000412

PATIENT

DRUGS (8)
  1. METHYLPHENIDATE HYDROCHLORIDE. [Suspect]
     Active Substance: METHYLPHENIDATE HYDROCHLORIDE
     Indication: FATIGUE
     Dosage: UNK
     Route: 065
  2. METHYLPHENIDATE HYDROCHLORIDE. [Suspect]
     Active Substance: METHYLPHENIDATE HYDROCHLORIDE
     Indication: INSOMNIA
  3. MELATONIN [Suspect]
     Active Substance: MELATONIN
     Indication: DEPRESSION
  4. MELATONIN [Suspect]
     Active Substance: MELATONIN
     Indication: QUALITY OF LIFE DECREASED
  5. MELATONIN [Suspect]
     Active Substance: MELATONIN
     Indication: INSOMNIA
  6. METHYLPHENIDATE HYDROCHLORIDE. [Suspect]
     Active Substance: METHYLPHENIDATE HYDROCHLORIDE
     Indication: DEPRESSION
  7. MELATONIN [Suspect]
     Active Substance: MELATONIN
     Indication: FATIGUE
     Dosage: UNK
     Route: 065
  8. METHYLPHENIDATE HYDROCHLORIDE. [Suspect]
     Active Substance: METHYLPHENIDATE HYDROCHLORIDE
     Indication: QUALITY OF LIFE DECREASED

REACTIONS (2)
  - Hepatic infection [Unknown]
  - Drug ineffective for unapproved indication [Unknown]
